FAERS Safety Report 8449495-7 (Version None)
Quarter: 2012Q2

REPORT INFORMATION
  Report Type: 
  Country: None (occurrence: None)
  Receive Date: 20120619
  Receipt Date: 20120608
  Transmission Date: 20120825
  Serious: Yes (Hospitalization)
  Sender: FDA-Public Use
  Company Number: JP-MERCK-1206USA02394

PATIENT
  Age: 65 Year
  Sex: Female

DRUGS (2)
  1. FOSAMAX [Suspect]
     Indication: OSTEOPOROSIS
     Route: 048
     Dates: start: 20100801, end: 20111201
  2. FOSAMAX [Suspect]
     Route: 048
     Dates: end: 20100801

REACTIONS (2)
  - ATYPICAL FEMUR FRACTURE [None]
  - FALL [None]
